FAERS Safety Report 8553432-4 (Version None)
Quarter: 2012Q2

REPORT INFORMATION
  Report Type: 
  Country: None (occurrence: None)
  Receive Date: 20120417
  Receipt Date: 20110324
  Transmission Date: 20120825
  Serious: Yes (Other)
  Sender: FDA-Public Use
  Company Number: 11-153

PATIENT
  Age: 24 Year
  Sex: Male
  Weight: 65.7716 kg

DRUGS (1)
  1. ALEVE [Suspect]
     Indication: BACK PAIN
     Dosage: 220MG ORAL
     Route: 048

REACTIONS (6)
  - PRURITUS [None]
  - SWELLING [None]
  - SKIN WARM [None]
  - LOSS OF CONSCIOUSNESS [None]
  - BODY TEMPERATURE INCREASED [None]
  - PARAESTHESIA [None]
